FAERS Safety Report 7033064-X (Version None)
Quarter: 2010Q4

REPORT INFORMATION
  Report Type: 
  Country: None (occurrence: None)
  Receive Date: 20101004
  Receipt Date: 20100924
  Transmission Date: 20110411
  Serious: Yes (Death)
  Sender: FDA-Public Use
  Company Number: 2010EU005115

PATIENT
  Age: 5 Year
  Sex: Male

DRUGS (3)
  1. TACROLIMUS [Suspect]
     Indication: STEM CELL TRANSPLANT
  2. CYCLOSPORINE [Suspect]
     Indication: PROPHYLAXIS AGAINST GRAFT VERSUS HOST DISEASE
  3. METHOTREXATE [Suspect]
     Indication: PROPHYLAXIS AGAINST GRAFT VERSUS HOST DISEASE

REACTIONS (18)
  - ACUTE GRAFT VERSUS HOST DISEASE [None]
  - ALANINE AMINOTRANSFERASE INCREASED [None]
  - ASPARTATE AMINOTRANSFERASE INCREASED [None]
  - BLOOD BILIRUBIN INCREASED [None]
  - CANDIDIASIS [None]
  - COGNITIVE DISORDER [None]
  - COMPLICATIONS OF TRANSPLANT SURGERY [None]
  - DEVICE RELATED INFECTION [None]
  - MULTI-ORGAN DISORDER [None]
  - NO THERAPEUTIC RESPONSE [None]
  - OFF LABEL USE [None]
  - POIKILOCYTOSIS [None]
  - PULMONARY HAEMORRHAGE [None]
  - PYREXIA [None]
  - RED BLOOD CELL ANISOCYTES PRESENT [None]
  - RETICULOCYTE PERCENTAGE INCREASED [None]
  - STEM CELL TRANSPLANT [None]
  - THROMBOTIC MICROANGIOPATHY [None]
